FAERS Safety Report 10020426 (Version 2)
Quarter: 2014Q2

REPORT INFORMATION
  Report Type: Spontaneous
  Country: US (occurrence: US)
  Receive Date: 20140319
  Receipt Date: 20140522
  Transmission Date: 20141212
  Serious: No
  Sender: FDA-Public Use
  Company Number: US-BIOGENIDEC-2014BI022518

PATIENT
  Age: 49 Year
  Sex: Female

DRUGS (9)
  1. TECFIDERA [Suspect]
     Indication: MULTIPLE SCLEROSIS
     Route: 048
     Dates: start: 20140131
  2. BACLOFEN [Concomitant]
  3. CYMBALTA [Concomitant]
  4. GABAPENTIN [Concomitant]
  5. LEVOTHYROXINE SODIUM [Concomitant]
  6. LORAZEPAM [Concomitant]
  7. LUMIGAN [Concomitant]
  8. NUVIGIL [Concomitant]
  9. PATADAY [Concomitant]

REACTIONS (1)
  - Night sweats [Not Recovered/Not Resolved]
